FAERS Safety Report 8894158 (Version 3)
Quarter: 2013Q4

REPORT INFORMATION
  Report Type: Spontaneous
  Country: JP (occurrence: JP)
  Receive Date: 20121108
  Receipt Date: 20131126
  Transmission Date: 20140711
  Serious: Yes (Disabling)
  Sender: FDA-Public Use
  Company Number: JP-009507513-1211JPN001381

PATIENT
  Age: 60 Year
  Sex: Female

DRUGS (3)
  1. SINGULAIR TABLETS 10MG [Suspect]
     Indication: ASTHMA
     Dosage: 1 DF, QD
     Route: 048
     Dates: start: 201001, end: 201210
  2. ALLELOCK [Suspect]
     Indication: RHINITIS ALLERGIC
     Dosage: 1 DF, QD
     Route: 048
     Dates: start: 201003
  3. SYMBICORT [Suspect]
     Indication: ASTHMA
     Dosage: 2 DF, BID
     Route: 055
     Dates: start: 201210, end: 201211

REACTIONS (1)
  - Muscular weakness [Recovered/Resolved]
